FAERS Safety Report 6321726-9 (Version None)
Quarter: 2009Q3

REPORT INFORMATION
  Report Type: 
  Country: None (occurrence: None)
  Receive Date: 20090819
  Receipt Date: 20090803
  Transmission Date: 20100115
  Serious: Yes (Hospitalization)
  Sender: FDA-Public Use
  Company Number: TCI2009A00744

PATIENT
  Age: 68 Year
  Sex: Female

DRUGS (6)
  1. LANSOPRAZOLE [Suspect]
     Indication: PROPHYLAXIS AGAINST GASTROINTESTINAL ULCER
     Dosage: 15 MG (15 MG, 1 IN 1 D)
     Route: 048
     Dates: start: 20080425
  2. ASPARA-CA (ASPARATATE CALCIUM) [Concomitant]
  3. PRENISOLONE (PREDNISOLONE) [Concomitant]
  4. PREDNISOLONE [Concomitant]
  5. LORCAM (LORNOXICAM) [Concomitant]
  6. BONALON (ALENDRONIC ACID) [Concomitant]

REACTIONS (2)
  - CONDITION AGGRAVATED [None]
  - OVARIAN NEOPLASM [None]
